FAERS Safety Report 4555767-9 (Version None)
Quarter: 2005Q1

REPORT INFORMATION
  Report Type: 
  Country: None (occurrence: None)
  Receive Date: 20050119
  Receipt Date: 20050113
  Transmission Date: 20050727
  Serious: Yes (Hospitalization)
  Sender: FDA-Public Use
  Company Number: PHNU2005DE00547

PATIENT
  Sex: Male

DRUGS (5)
  1. VIOXX [Suspect]
     Dates: start: 20040101, end: 20040301
  2. ACETYLSALICYLIC ACID SRT [Concomitant]
  3. SORTIS [Concomitant]
     Dates: end: 20041201
  4. CONCOR [Concomitant]
  5. CO-DIOVAN [Suspect]
     Indication: HYPERTENSION
     Dosage: 1 DF, QD
     Route: 048
     Dates: start: 19990101, end: 20041201

REACTIONS (4)
  - BLOOD CREATININE INCREASED [None]
  - INFECTION [None]
  - NEPHRITIS INTERSTITIAL [None]
  - PYREXIA [None]
